FAERS Safety Report 7286743-3 (Version None)
Quarter: 2011Q1

REPORT INFORMATION
  Report Type: 
  Country: None (occurrence: None)
  Receive Date: 20110210
  Receipt Date: 20110208
  Transmission Date: 20110831
  Serious: Yes (Other)
  Sender: FDA-Public Use
  Company Number: BR-ABBOTT-10P-020-0692103-00

PATIENT
  Sex: Male
  Weight: 23 kg

DRUGS (11)
  1. DEPAKENE [Suspect]
     Dosage: 4ML
  2. HIDANTAL [Concomitant]
     Indication: PRODUCT USED FOR UNKNOWN INDICATION
     Dosage: .5TAB
  3. TEGRETOL [Concomitant]
     Indication: PRODUCT USED FOR UNKNOWN INDICATION
  4. DEPAKENE [Suspect]
     Indication: MUSCLE SPASMS
     Route: 048
     Dates: start: 20101202
  5. DEPAKENE [Suspect]
     Dosage: 1 ML
  6. CLONAZEPAM [Interacting]
     Indication: MUSCLE SPASMS
     Dosage: 3 DROPS 2 TIMES A DAY
     Route: 048
  7. CARBAMAZEPINE [Concomitant]
     Indication: PRODUCT USED FOR UNKNOWN INDICATION
  8. DEPAKENE [Suspect]
     Dosage: 1ML
  9. PHENYTOIN [Concomitant]
     Indication: PRODUCT USED FOR UNKNOWN INDICATION
  10. DEPAKENE [Suspect]
     Dosage: 3 ML
  11. DEPAKENE [Suspect]

REACTIONS (11)
  - MUSCLE SPASMS [None]
  - MUSCLE RIGIDITY [None]
  - BRONCHITIS [None]
  - DRUG INTERACTION [None]
  - DRUG ADMINISTRATION ERROR [None]
  - DYSKINESIA [None]
  - DRUG INEFFECTIVE [None]
  - LISTLESS [None]
  - ABDOMINAL PAIN UPPER [None]
  - NASOPHARYNGITIS [None]
  - COORDINATION ABNORMAL [None]
